FAERS Safety Report 8622659-5 (Version None)
Quarter: 2012Q3

REPORT INFORMATION
  Report Type: 
  Country: None (occurrence: None)
  Receive Date: 20120827
  Receipt Date: 20120816
  Transmission Date: 20120928
  Serious: Yes (Other)
  Sender: FDA-Public Use
  Company Number: US-JNJFOC-20120809626

PATIENT
  Sex: Female
  Weight: 70.31 kg

DRUGS (1)
  1. REMICADE [Suspect]
     Indication: PSORIASIS
     Dosage: EVERY 5-6 WEEKS
     Route: 042
     Dates: start: 20091101, end: 20120601

REACTIONS (2)
  - WEIGHT DECREASED [None]
  - PSORIASIS [None]
